FAERS Safety Report 5303516-9 (Version None)
Quarter: 2007Q2

REPORT INFORMATION
  Report Type: 
  Country: None (occurrence: None)
  Receive Date: 20070420
  Receipt Date: 20070413
  Transmission Date: 20071010
  Serious: Yes (Other)
  Sender: FDA-Public Use
  Company Number: GB-PFIZER INC-2007029925

PATIENT
  Sex: Female

DRUGS (14)
  1. LYRICA [Suspect]
     Indication: PAIN
     Route: 048
     Dates: start: 20070309, end: 20070322
  2. ALENDRONIC ACID [Concomitant]
     Indication: OSTEOPOROSIS PROPHYLAXIS
     Route: 048
  3. AMLODIPINE [Concomitant]
     Indication: HYPERTENSION
     Route: 048
  4. ATENOLOL [Concomitant]
     Indication: HYPERTENSION
     Route: 048
  5. CALCICHEW-D3 [Concomitant]
     Indication: OSTEOPOROSIS PROPHYLAXIS
     Route: 048
  6. DOXAZOSIN MESYLATE [Concomitant]
     Indication: HYPERTENSION
     Route: 048
  7. ENOXAPARIN SODIUM [Concomitant]
     Indication: PROPHYLAXIS
     Route: 058
     Dates: start: 20070201
  8. FOLIC ACID [Concomitant]
     Indication: RHEUMATOID ARTHRITIS
     Route: 048
  9. FRUSEMIDE [Concomitant]
     Indication: HYPERTENSION
     Route: 048
  10. IMIPENEM [Concomitant]
     Indication: WOUND INFECTION
     Route: 042
     Dates: start: 20070226, end: 20070322
  11. METHOTREXATE [Concomitant]
     Indication: RHEUMATOID ARTHRITIS
     Route: 048
  12. OMEPRAZOLE [Concomitant]
     Route: 048
  13. PARACETAMOL [Concomitant]
     Indication: PAIN
     Route: 048
     Dates: start: 20070201
  14. TRAMADOL HCL [Concomitant]
     Indication: PAIN
     Route: 048
     Dates: start: 20070201

REACTIONS (2)
  - COORDINATION ABNORMAL [None]
  - MUSCLE SPASMS [None]
